FAERS Safety Report 18360754 (Version 1)
Quarter: 2020Q4

REPORT INFORMATION
  Report Type: Spontaneous
  Country: US (occurrence: US)
  Receive Date: 20201008
  Receipt Date: 20201008
  Transmission Date: 20210114
  Serious: No
  Sender: FDA-Public Use
  Company Number: US-MYLANLABS-2020M1084282

PATIENT
  Sex: Female
  Weight: 78 kg

DRUGS (1)
  1. LIDOCAINE PATCH [Suspect]
     Active Substance: LIDOCAINE
     Indication: NEURALGIA
     Dosage: 5 PERCENT, QD
     Route: 003
     Dates: start: 20200926

REACTIONS (3)
  - Product adhesion issue [Recovering/Resolving]
  - Off label use [Recovering/Resolving]
  - Device issue [Recovering/Resolving]
